FAERS Safety Report 23451323 (Version 2)
Quarter: 2024Q2

REPORT INFORMATION
  Report Type: Report from Study
  Country: US (occurrence: US)
  Receive Date: 20240129
  Receipt Date: 20240410
  Transmission Date: 20240715
  Serious: Yes (Other)
  Sender: FDA-Public Use
  Company Number: US-AMGEN-USASP2024013889

PATIENT
  Age: 91 Year
  Sex: Female

DRUGS (2)
  1. EVENITY [Suspect]
     Active Substance: ROMOSOZUMAB-AQQG
     Indication: Osteoporosis
     Dosage: 210 MILLIGRAM, QMO
     Route: 058
     Dates: start: 202310
  2. ZENPEP [Concomitant]
     Active Substance: PANCRELIPASE AMYLASE\PANCRELIPASE LIPASE\PANCRELIPASE PROTEASE
     Dosage: UNK

REACTIONS (13)
  - Mitral valve prolapse [Unknown]
  - Cough [Unknown]
  - Productive cough [Unknown]
  - Feeling abnormal [Unknown]
  - Viral infection [Unknown]
  - Haematology test abnormal [Unknown]
  - Serum ferritin decreased [Unknown]
  - Haemochromatosis [Unknown]
  - Influenza [Unknown]
  - Thyroid disorder [Unknown]
  - Weight decreased [Unknown]
  - Red blood cell count decreased [Unknown]
  - Haemoglobin decreased [Unknown]

NARRATIVE: CASE EVENT DATE: 20231001
